FAERS Safety Report 9312348 (Version 1)
Quarter: 2013Q2

REPORT INFORMATION
  Report Type: Report from Study
  Country: US (occurrence: BW)
  Receive Date: 20130528
  Receipt Date: 20130528
  Transmission Date: 20140414
  Serious: Yes (Hospitalization)
  Sender: FDA-Public Use
  Company Number: BW-B.I. PHARMACEUTICALS,INC./RIDGEFIELD-2013-BI-14847GD

PATIENT
  Age: 33 Year
  Sex: Female

DRUGS (5)
  1. VIRAMUNE [Suspect]
     Indication: HIV INFECTION
  2. TENOFOVIR [Suspect]
     Indication: HIV INFECTION
  3. EMTRICITABINE [Suspect]
     Indication: HIV INFECTION
  4. FLUCONAZOLE [Concomitant]
     Indication: CRYPTOCOCCOSIS
     Dosage: 400 MG
     Route: 048
  5. FLUCONAZOLE [Concomitant]
     Dosage: 200 MG
     Route: 048

REACTIONS (6)
  - Haemoptysis [Unknown]
  - Jaundice [Unknown]
  - Pneumonia [Unknown]
  - Haematemesis [Unknown]
  - Anaemia [Unknown]
  - Oedema peripheral [Unknown]
